FAERS Safety Report 20848614 (Version 12)
Quarter: 2024Q3

REPORT INFORMATION
  Report Type: Report from Study
  Country: CA (occurrence: CA)
  Receive Date: 20220519
  Receipt Date: 20240916
  Transmission Date: 20241016
  Serious: Yes (Other)
  Sender: CURRAX PHARMACEUTICALS
  Company Number: CA-BAUSCH-BL-2022-009178

PATIENT
  Sex: Female
  Weight: 88.889 kg

DRUGS (11)
  1. CONTRAVE [Suspect]
     Active Substance: BUPROPION HYDROCHLORIDE\NALTREXONE HYDROCHLORIDE
     Indication: Weight control
     Dosage: 90/8 MG, 1 TAB Q AM
     Route: 048
     Dates: start: 20220402, end: 2022
  2. CONTRAVE [Suspect]
     Active Substance: BUPROPION HYDROCHLORIDE\NALTREXONE HYDROCHLORIDE
     Dosage: 90/8 MG (2ND MONTH)
     Route: 048
     Dates: start: 2022, end: 2022
  3. CONTRAVE [Suspect]
     Active Substance: BUPROPION HYDROCHLORIDE\NALTREXONE HYDROCHLORIDE
     Dosage: 90/8 MG, 2 TAB Q AM 2 TAB Q PM
     Route: 048
     Dates: start: 202204, end: 202207
  4. CONTRAVE [Suspect]
     Active Substance: BUPROPION HYDROCHLORIDE\NALTREXONE HYDROCHLORIDE
     Dosage: 90/8 MG, 2 TAB Q AM 1 TAB Q PM
     Route: 048
     Dates: start: 20220704, end: 20220717
  5. CONTRAVE [Suspect]
     Active Substance: BUPROPION HYDROCHLORIDE\NALTREXONE HYDROCHLORIDE
     Dosage: 90/8 MG, 1 TAB Q AM 1 TAB Q PM
     Route: 048
     Dates: start: 20220718, end: 20220730
  6. CONTRAVE [Suspect]
     Active Substance: BUPROPION HYDROCHLORIDE\NALTREXONE HYDROCHLORIDE
     Dosage: 90/8 MG, 2 TAB Q AM 1 TAB Q PM
     Route: 048
     Dates: start: 20220801, end: 20220807
  7. CONTRAVE [Suspect]
     Active Substance: BUPROPION HYDROCHLORIDE\NALTREXONE HYDROCHLORIDE
     Dosage: 90/8 MG, 2 TAB Q AM 2 TAB Q PM
     Route: 048
     Dates: start: 20220808, end: 20230830
  8. CONTRAVE [Suspect]
     Active Substance: BUPROPION HYDROCHLORIDE\NALTREXONE HYDROCHLORIDE
     Dosage: 90/8 MG, 2 TAB Q AM 2 TAB Q PM (SECOND ATTEMPT)
     Route: 048
     Dates: start: 20230911
  9. TOPIRAMATE [Concomitant]
     Active Substance: TOPIRAMATE
     Indication: Weight decreased
     Dosage: 1 IN 1 D
     Route: 048
  10. SEROQUEL [Concomitant]
     Active Substance: QUETIAPINE FUMARATE
     Indication: Mental disorder
     Dosage: 1 IN 1 D
     Route: 048
  11. INVEGA TRINZA [Concomitant]
     Active Substance: PALIPERIDONE PALMITATE
     Indication: Mental disorder
     Dosage: 1 IN 2 M
     Route: 030

REACTIONS (33)
  - Crohn^s disease [Unknown]
  - Rheumatoid arthritis [Not Recovered/Not Resolved]
  - Haematochezia [Not Recovered/Not Resolved]
  - Obsessive-compulsive disorder [Recovering/Resolving]
  - Condition aggravated [Recovering/Resolving]
  - Binge eating [Unknown]
  - Food craving [Unknown]
  - Weight increased [Not Recovered/Not Resolved]
  - Irritable bowel syndrome [Not Recovered/Not Resolved]
  - Gastrooesophageal reflux disease [Not Recovered/Not Resolved]
  - Migraine [Not Recovered/Not Resolved]
  - Fibrocystic breast disease [Not Recovered/Not Resolved]
  - Fibromyalgia [Not Recovered/Not Resolved]
  - Epigastric discomfort [Not Recovered/Not Resolved]
  - Abdominal discomfort [Not Recovered/Not Resolved]
  - Abdominal pain [Not Recovered/Not Resolved]
  - Nausea [Not Recovered/Not Resolved]
  - Dizziness [Recovered/Resolved]
  - Fatigue [Not Recovered/Not Resolved]
  - Headache [Recovered/Resolved]
  - Nightmare [Recovering/Resolving]
  - Depression [Not Recovered/Not Resolved]
  - Diarrhoea [Not Recovered/Not Resolved]
  - Anxiety [Not Recovered/Not Resolved]
  - Insomnia [Not Recovered/Not Resolved]
  - Irritability [Not Recovered/Not Resolved]
  - Therapy interrupted [Unknown]
  - Prescribed underdose [Unknown]
  - Product dose omission in error [Unknown]
  - Drug dose titration not performed [Unknown]
  - Intentional underdose [Unknown]
  - Inappropriate schedule of product administration [Unknown]
  - Underdose [Unknown]

NARRATIVE: CASE EVENT DATE: 20220101
